FAERS Safety Report 12603015 (Version 1)
Quarter: 2016Q3

REPORT INFORMATION
  Report Type: Spontaneous
  Country: US (occurrence: US)
  Receive Date: 20160721
  Receipt Date: 20160721
  Transmission Date: 20161109
  Serious: Yes (Hospitalization)
  Sender: FDA-Public Use
  Company Number: US-TORRENT-00000985

PATIENT
  Age: 58 Year
  Sex: Female
  Weight: 128 kg

DRUGS (19)
  1. POTASSIUM CHLORIDE. [Concomitant]
     Active Substance: POTASSIUM CHLORIDE
     Indication: FLUID RETENTION
     Dosage: 2 TABLETS BY MOUTH ONCE A DAY WITH LASIX
     Route: 048
  2. LYRICA [Suspect]
     Active Substance: PREGABALIN
     Indication: INTERVERTEBRAL DISC DEGENERATION
     Dosage: ONE TWICE A DAY BY MOUTH
     Route: 048
  3. ADVAIR DISKUS [Concomitant]
     Active Substance: FLUTICASONE PROPIONATE\SALMETEROL XINAFOATE
     Indication: ASTHMA
     Dosage: ONE PUFF DAILY WHEN NEEDED
  4. OXYGEN. [Concomitant]
     Active Substance: OXYGEN
     Indication: DYSPNOEA
     Dosage: 2 LITERS INHALED AT NIGHT AND WHEN NEEDED
  5. CYMBALTA [Concomitant]
     Active Substance: DULOXETINE HYDROCHLORIDE
     Dosage: ONE BY MOUTH AT NIGHT
     Route: 048
  6. ISOSORBIDE MONONITRATE-ISOSORBIDE MONONITRATE TABLET, EXTENDED RELEASE [Suspect]
     Active Substance: ISOSORBIDE MONONITRATE
     Indication: CHEST PAIN
     Dosage: 60 MG TWICE DAILY
     Route: 048
     Dates: start: 2010
  7. LANTUS [Suspect]
     Active Substance: INSULIN GLARGINE
     Indication: DIABETES MELLITUS
     Dosage: 100 IU/ML - 24 UNITS SUBCUTANEOUSLY EVERY EVENING
     Route: 058
     Dates: start: 2009
  8. METFORMIN HYDROCHLORIDE. [Suspect]
     Active Substance: METFORMIN HYDROCHLORIDE
     Indication: DIABETES MELLITUS
     Dosage: TWICE A DAY BY MOUTH
     Route: 048
     Dates: start: 2008
  9. CYMBALTA [Concomitant]
     Active Substance: DULOXETINE HYDROCHLORIDE
     Indication: NEUROPATHY PERIPHERAL
     Dosage: 30MG CAPSULE PLUS ONE 60MG CAPSULE BY MOUTH ONCE AT NIGHT
     Route: 048
  10. LISINOPRIL. [Concomitant]
     Active Substance: LISINOPRIL
     Indication: HYPERTENSION
     Dosage: ONCE A DAY
     Route: 048
  11. XOPENEX [Concomitant]
     Active Substance: LEVALBUTEROL HYDROCHLORIDE
     Indication: DYSPNOEA
     Dosage: 2 PUFFS INHALED BY MOUTH EVERY 4 TO 6 HOURS WHEN NEEDED
  12. GLIPIZIDE. [Suspect]
     Active Substance: GLIPIZIDE
     Indication: DIABETES MELLITUS
     Dosage: TWICE A DAY
     Route: 048
     Dates: start: 2008
  13. FISH OIL [Concomitant]
     Active Substance: FISH OIL
     Indication: HYPERTRIGLYCERIDAEMIA
     Dosage: TWO CAPSULES BY MOUTH TWICE A DAY
     Route: 055
  14. CLONAZEPAM. [Suspect]
     Active Substance: CLONAZEPAM
     Indication: ANXIETY
     Dosage: ONE TABLET BY MOUTH TWICE DAILY AS NEEDED
     Route: 048
     Dates: start: 2008
  15. ATENOLOL. [Suspect]
     Active Substance: ATENOLOL
     Indication: PALPITATIONS
     Dosage: ONE TWICE A DAY BY MOUTH
     Route: 048
     Dates: start: 2008
  16. LASIX [Concomitant]
     Active Substance: FUROSEMIDE
     Indication: FLUID RETENTION
     Dosage: ONCE A DAY
     Route: 048
  17. NITROSTAT [Concomitant]
     Active Substance: NITROGLYCERIN
     Indication: CHEST PAIN
     Dosage: ONE TABLET WHEN NEEDED FOR CHEST PAIN
  18. SIMVASTATIN. [Concomitant]
     Active Substance: SIMVASTATIN
     Indication: BLOOD CHOLESTEROL INCREASED
     Dosage: ONCE AT NIGHT
     Route: 048
  19. LEVOTHYROXINE. [Concomitant]
     Active Substance: LEVOTHYROXINE
     Indication: HYPOTHYROIDISM
     Dosage: ONCE A DAY
     Route: 048

REACTIONS (8)
  - Muscle spasms [None]
  - Amnesia [None]
  - Cyanosis [None]
  - Chest pain [Recovered/Resolved]
  - Drug dose omission [None]
  - Dyspnoea [Recovered/Resolved]
  - Bradycardia [None]
  - Pneumonia [None]

NARRATIVE: CASE EVENT DATE: 201506
